FAERS Safety Report 12480299 (Version 1)
Quarter: 2016Q2

REPORT INFORMATION
  Report Type: Spontaneous
  Country: US (occurrence: None)
  Receive Date: 20160617
  Receipt Date: 20160617
  Transmission Date: 20160815
  Serious: Yes (Life-Threatening, Disabling, Other)
  Sender: FDA-Public Use
  Company Number: None

PATIENT
  Age: 52 Year
  Sex: Male
  Weight: 131.54 kg

DRUGS (6)
  1. ADVIL [Concomitant]
     Active Substance: IBUPROFEN
  2. VITAMIN B COMPLEX [Concomitant]
     Active Substance: CYANOCOBALAMIN\DEXPANTHENOL\NIACINAMIDE\PYRIDOXINE HYDROCHLORIDE\RIBOFLAVIN 5^-PHOSPHATE SODIUM\THIAMINE HYDROCHLORIDE\VITAMIN B COMPLEX
  3. TYLENOL [Concomitant]
     Active Substance: ACETAMINOPHEN
  4. IBUPROFEN. [Concomitant]
     Active Substance: IBUPROFEN
  5. ZZZ-QUILL [Concomitant]
  6. LISINOPRIL, 5 MG [Suspect]
     Active Substance: LISINOPRIL
     Indication: PRODUCT USED FOR UNKNOWN INDICATION
     Dosage: 1 TABLET(S) AT BEDTIME TAKEN BY MOUTH
     Route: 048
     Dates: start: 20160301, end: 20160612

REACTIONS (7)
  - Gait disturbance [None]
  - Meniscus injury [None]
  - Peripheral swelling [None]
  - Pain in extremity [None]
  - Erythema [None]
  - Hypersensitivity [None]
  - Cardiovascular insufficiency [None]

NARRATIVE: CASE EVENT DATE: 20160612
